FAERS Safety Report 5868250-5 (Version None)
Quarter: 2008Q3

REPORT INFORMATION
  Report Type: 
  Country: None (occurrence: None)
  Receive Date: 20080902
  Receipt Date: 20080826
  Transmission Date: 20090109
  Serious: Yes (Hospitalization)
  Sender: FDA-Public Use
  Company Number: US-PFIZER INC-2008071324

PATIENT
  Sex: Female
  Weight: 99.3 kg

DRUGS (9)
  1. SU-011,248 [Suspect]
     Indication: BREAST CANCER
     Route: 048
     Dates: start: 20080710, end: 20080815
  2. SU-011,248 [Suspect]
     Dosage: DAILY DOSE:37.5MG
     Route: 048
     Dates: start: 20080816, end: 20080825
  3. TAXOL [Suspect]
     Indication: BREAST CANCER
     Route: 042
     Dates: start: 20080710, end: 20080825
  4. ZOLOFT [Concomitant]
     Route: 048
  5. SYNTHROID [Concomitant]
     Route: 048
  6. CELEBREX [Concomitant]
     Route: 048
  7. LORTAB [Concomitant]
     Route: 048
  8. ZANTAC [Concomitant]
     Route: 048
  9. XANAX [Concomitant]
     Route: 048

REACTIONS (1)
  - GASTRIC ULCER [None]
